FAERS Safety Report 12393679 (Version 1)
Quarter: 2016Q2

REPORT INFORMATION
  Report Type: Spontaneous
  Country: US (occurrence: US)
  Receive Date: 20160523
  Receipt Date: 20160523
  Transmission Date: 20160815
  Serious: No
  Sender: FDA-Public Use
  Company Number: US-BAUSCH-BL-2015-022855

PATIENT
  Sex: Female
  Weight: 56.75 kg

DRUGS (7)
  1. LEVOTHYROXINE 75 MCG [Concomitant]
     Indication: THYROID HORMONE REPLACEMENT THERAPY
     Route: 048
  2. KEPPRA 500 MG [Concomitant]
     Indication: SEIZURE
     Dosage: TWO DOSAGE FORM  AT BEDTIME AND HALF IN THE AM
     Route: 048
     Dates: start: 2014
  3. LAMICTAL [Concomitant]
     Active Substance: LAMOTRIGINE
     Indication: PRODUCT USED FOR UNKNOWN INDICATION
     Route: 048
     Dates: start: 2014
  4. METFORMIN [Concomitant]
     Active Substance: METFORMIN HYDROCHLORIDE
     Indication: DIABETES MELLITUS
     Dosage: 2 IN AM AND 2 WITH DINNER
     Route: 048
     Dates: start: 2014
  5. LIOTHYRONINE 5 MCG [Concomitant]
     Indication: THYROID HORMONE REPLACEMENT THERAPY
     Dosage: 2 ON MWF (ALTERED DAYS), 1 ON OTHER DAYS
     Route: 048
  6. MYSOLINE [Suspect]
     Active Substance: PRIMIDONE
     Indication: SEIZURE
     Dosage: AT BED TIME
     Route: 048
  7. ATORVASTATIN 10 MG [Concomitant]
     Active Substance: ATORVASTATIN
     Indication: BLOOD CHOLESTEROL INCREASED
     Route: 048
     Dates: start: 2014

REACTIONS (3)
  - Condition aggravated [Not Recovered/Not Resolved]
  - Gait disturbance [Not Recovered/Not Resolved]
  - Therapy cessation [Unknown]

NARRATIVE: CASE EVENT DATE: 2014
